FAERS Safety Report 14030416 (Version 1)
Quarter: 2017Q4

REPORT INFORMATION
  Report Type: Spontaneous
  Country: US (occurrence: US)
  Receive Date: 20171002
  Receipt Date: 20171002
  Transmission Date: 20180321
  Serious: No
  Sender: FDA-Public Use
  Company Number: US-MAYNE PHARMA-2017MYN000478

PATIENT

DRUGS (3)
  1. ACZONE [Suspect]
     Active Substance: DAPSONE
     Indication: ACNE
     Dosage: UNK
     Route: 061
  2. BENZOYL PEROXIDE. [Suspect]
     Active Substance: BENZOYL PEROXIDE
     Indication: ACNE
     Dosage: UNK
     Route: 061
  3. FABIOR [Suspect]
     Active Substance: TAZAROTENE
     Indication: ACNE
     Dosage: UNK
     Route: 061
     Dates: start: 20170315, end: 201703

REACTIONS (3)
  - Panic attack [Recovered/Resolved]
  - Application site pain [Recovered/Resolved]
  - Hypersensitivity [Recovered/Resolved]

NARRATIVE: CASE EVENT DATE: 20170315
